FAERS Safety Report 6682735-3 (Version None)
Quarter: 2010Q2

REPORT INFORMATION
  Report Type: 
  Country: None (occurrence: None)
  Receive Date: 20100415
  Receipt Date: 20100408
  Transmission Date: 20101027
  Serious: Yes (Hospitalization)
  Sender: FDA-Public Use
  Company Number: DE-ROCHE-688828

PATIENT
  Sex: Female
  Weight: 64 kg

DRUGS (7)
  1. BEVACIZUMAB [Suspect]
     Indication: BREAST CANCER
     Dosage: TEMPORARILY INTERRUPTED, DOSE D1AY 1, LAST DOSE PRIOR TO SAE: 24 FEB 10
     Route: 042
     Dates: start: 20091125, end: 20100302
  2. CAPECITABINE [Suspect]
     Indication: BREAST CANCER
     Dosage: FREQUECNY; DAY1-14,
     Route: 048
     Dates: start: 20091125, end: 20100302
  3. VINORELBINE [Suspect]
     Indication: BREAST CANCER
     Dosage: TEMPORARILY INTERRUPTED, DOSE DAY 1+8, LAST DOSE PRIOR TO SAE: 24 FEB 2010
     Route: 042
     Dates: start: 20091125, end: 20100302
  4. NOVOLIZER [Concomitant]
  5. DIPYRONE TAB [Concomitant]
  6. IBANDRONIC ACID [Concomitant]
     Dosage: TDD; 6MG/Q4W
     Dates: start: 20060918
  7. ENALAPRIL MALEATE [Concomitant]
     Dosage: TDD: 1-0-1
     Dates: start: 20091118

REACTIONS (1)
  - INFARCTION [None]
